FAERS Safety Report 4287167-3 (Version None)
Quarter: 2004Q1

REPORT INFORMATION
  Report Type: 
  Country: None (occurrence: None)
  Receive Date: 20040121
  Receipt Date: 20030507
  Transmission Date: 20041129
  Serious: Yes (Hospitalization)
  Sender: FDA-Public Use
  Company Number: 03P-163-0218488-00

PATIENT
  Sex: Female

DRUGS (1)
  1. RYTHMOL [Suspect]
     Indication: ARRHYTHMIA
     Dosage: 150 MG, 3 IN 1 D, PER ORAL
     Route: 048
     Dates: start: 20030101, end: 20030401

REACTIONS (2)
  - HEPATITIS TOXIC [None]
  - JAUNDICE [None]
